FAERS Safety Report 6061622-8 (Version None)
Quarter: 2009Q1

REPORT INFORMATION
  Report Type: 
  Country: None (occurrence: None)
  Receive Date: 20090202
  Receipt Date: 20090123
  Transmission Date: 20090719
  Serious: Yes (Hospitalization)
  Sender: FDA-Public Use
  Company Number: A0757430A

PATIENT
  Age: 50 Year
  Sex: Male
  Weight: 100 kg

DRUGS (4)
  1. AVANDIA [Suspect]
     Dosage: 8MG AT NIGHT
     Route: 048
     Dates: start: 20040112, end: 20041220
  2. IBUPROFEN [Concomitant]
  3. GLUCOVANCE [Concomitant]
  4. LIPITOR [Concomitant]

REACTIONS (2)
  - MYOCARDIAL INFARCTION [None]
  - MYOCARDIAL ISCHAEMIA [None]
